FAERS Safety Report 9170994 (Version 1)
Quarter: 2013Q1

REPORT INFORMATION
  Report Type: Spontaneous
  Country: US (occurrence: US)
  Receive Date: 20130319
  Receipt Date: 20130319
  Transmission Date: 20140127
  Serious: No
  Sender: FDA-Public Use
  Company Number: US-BAYER-2013-031947

PATIENT
  Age: 67 Year
  Sex: Female
  Weight: 90.7 kg

DRUGS (6)
  1. ALEVE CAPLET/TABLET,MIDOL EXTENDED RELIEF CAPLET [Suspect]
     Indication: ARTHRALGIA
     Dosage: 2 DF, PRN
     Route: 048
  2. ALEVE CAPLET/TABLET,MIDOL EXTENDED RELIEF CAPLET [Suspect]
     Indication: ARTHRALGIA
     Dosage: 2 DF, PRN
  3. METFORMIN [Concomitant]
  4. FUROSEMIDE [FUROSEMIDE] [Concomitant]
     Dosage: UNK
  5. ^A PILL FOR A HEADACHE [Concomitant]
     Dosage: UNK
  6. DIOVAN [Concomitant]

REACTIONS (4)
  - Lip swelling [Recovered/Resolved]
  - Rash [Not Recovered/Not Resolved]
  - Drug ineffective [None]
  - Rash pruritic [Not Recovered/Not Resolved]
